FAERS Safety Report 4313973-2 (Version None)
Quarter: 2004Q1

REPORT INFORMATION
  Report Type: 
  Country: None (occurrence: None)
  Receive Date: 20040308
  Receipt Date: 20040308
  Transmission Date: 20041129
  Serious: Yes (Hospitalization)
  Sender: FDA-Public Use
  Company Number: None

PATIENT
  Age: 40 Year
  Sex: Female
  Weight: 42.6381 kg

DRUGS (2)
  1. ZOLOFT [Suspect]
     Dosage: 1 TABLET 1X / DAY ORAL
     Route: 048
  2. FLUOXETINE [Suspect]
     Dosage: 1 CAPSUL 1X/DAY ORAL
     Route: 048

REACTIONS (16)
  - AGITATION [None]
  - ANXIETY [None]
  - BLOOD PRESSURE DECREASED [None]
  - CARDIAC MURMUR [None]
  - DIZZINESS [None]
  - DRY MOUTH [None]
  - DYSPEPSIA [None]
  - FEELING ABNORMAL [None]
  - HEART RATE INCREASED [None]
  - HYPERHIDROSIS [None]
  - LOSS OF CONSCIOUSNESS [None]
  - NAUSEA [None]
  - PALLOR [None]
  - PALPITATIONS [None]
  - TACHYCARDIA [None]
  - TREMOR [None]
